FAERS Safety Report 5424012-4 (Version None)
Quarter: 2007Q3

REPORT INFORMATION
  Report Type: 
  Country: None (occurrence: None)
  Receive Date: 20070727
  Receipt Date: 20061005
  Transmission Date: 20080115
  Serious: Yes (Hospitalization)
  Sender: FDA-Public Use
  Company Number: THYM-11090

PATIENT
  Age: 39 Year
  Sex: Male

DRUGS (6)
  1. THYMOGLOBULIN [Suspect]
     Indication: LIVER TRANSPLANT
     Dosage: 1.5 MG/KG QOD IV
     Route: 042
     Dates: start: 20050818
  2. PROGRAF [Concomitant]
  3. BACTRIM [Concomitant]
  4. ROVALCYTE [Concomitant]
  5. MOPRAL [Concomitant]
  6. METHYLPREDNISOLONE [Concomitant]

REACTIONS (1)
  - HEPATITIS C [None]
